FAERS Safety Report 23643155 (Version 1)
Quarter: 2024Q1

REPORT INFORMATION
  Report Type: Spontaneous
  Country: AU (occurrence: AU)
  Receive Date: 20240318
  Receipt Date: 20240318
  Transmission Date: 20240410
  Serious: Yes (Death, Other)
  Sender: FDA-Public Use
  Company Number: AU-PFIZER INC-PV202400035510

PATIENT
  Age: 26 Year
  Sex: Male

DRUGS (5)
  1. ZITHROMAX [Suspect]
     Active Substance: AZITHROMYCIN DIHYDRATE
     Indication: Pneumonia
     Dosage: 500 MG
     Route: 042
     Dates: start: 20060203, end: 20060605
  2. FLAGYL [Concomitant]
     Active Substance: METRONIDAZOLE\METRONIDAZOLE HYDROCHLORIDE
     Indication: Sepsis
     Dosage: UNK
  3. GABAPENTIN [Concomitant]
     Active Substance: GABAPENTIN
     Dosage: UNK
  4. MS CONTIN [Concomitant]
     Active Substance: MORPHINE SULFATE
     Indication: Pain
     Dosage: UNK
  5. TIMENTIN [CLAVULANATE POTASSIUM;TICARCILLIN DISODIUM] [Concomitant]
     Indication: Sepsis
     Dosage: UNK

REACTIONS (9)
  - Anaphylactic reaction [Fatal]
  - Hypotension [Fatal]
  - Tachycardia [Fatal]
  - Hyperhidrosis [Fatal]
  - Nausea [Fatal]
  - Abdominal pain [Fatal]
  - Respiratory distress [Fatal]
  - Off label use [Unknown]
  - Product use issue [Unknown]

NARRATIVE: CASE EVENT DATE: 20060203
